FAERS Safety Report 20107956 (Version 1)
Quarter: 2021Q4

REPORT INFORMATION
  Report Type: Spontaneous
  Country: US (occurrence: US)
  Receive Date: 20211124
  Receipt Date: 20211124
  Transmission Date: 20220303
  Serious: No
  Sender: FDA-Public Use
  Company Number: US-PERRIGO-21US004595

PATIENT
  Age: 88 Year
  Sex: Male
  Weight: 81.633 kg

DRUGS (3)
  1. POLYETHYLENE GLYCOL 3350 [Suspect]
     Active Substance: POLYETHYLENE GLYCOL 3350
     Indication: Constipation
     Dosage: 17 G, QD
     Route: 048
     Dates: end: 20210216
  2. POLYETHYLENE GLYCOL 3350 [Suspect]
     Active Substance: POLYETHYLENE GLYCOL 3350
     Dosage: 17 G, QD
     Route: 048
     Dates: start: 20210217, end: 20210330
  3. PSYLLIUM                           /01328801/ [Concomitant]
     Indication: Constipation
     Dosage: UNK
     Route: 065

REACTIONS (5)
  - Flatulence [Not Recovered/Not Resolved]
  - Faeces soft [Not Recovered/Not Resolved]
  - Abnormal faeces [Not Recovered/Not Resolved]
  - Diarrhoea [Not Recovered/Not Resolved]
  - Incorrect product administration duration [Recovered/Resolved]

NARRATIVE: CASE EVENT DATE: 20210318
